FAERS Safety Report 8058913-8 (Version None)
Quarter: 2012Q1

REPORT INFORMATION
  Report Type: 
  Country: None (occurrence: None)
  Receive Date: 20120120
  Receipt Date: 20111006
  Transmission Date: 20120608
  Serious: Yes (Other)
  Sender: FDA-Public Use
  Company Number: US-BRISTOL-MYERS SQUIBB COMPANY-16115800

PATIENT
  Age: 7 Year
  Sex: Male

DRUGS (2)
  1. YERVOY [Suspect]
  2. DACARBAZINE [Suspect]

REACTIONS (1)
  - NEPHRITIS AUTOIMMUNE [None]
